FAERS Safety Report 7479224 (Version 3)
Quarter: 2013Q2

REPORT INFORMATION
  Report Type: Report from Study
  Country: FR (occurrence: FR)
  Receive Date: 20100716
  Receipt Date: 20130626
  Transmission Date: 20140414
  Serious: Yes (Hospitalization)
  Sender: FDA-Public Use
  Company Number: PHHY2010FR43656

PATIENT
  Age: 35 Year
  Sex: Male

DRUGS (4)
  1. STI571 [Suspect]
     Indication: CHRONIC MYELOID LEUKAEMIA
     Dosage: 200 MG, DAILY
     Dates: start: 20080505, end: 200812
  2. STI571 [Suspect]
     Dosage: 100 MG, DAILY
     Dates: start: 200812, end: 20090101
  3. STI571 [Suspect]
     Dosage: 200 MG, DAILY
     Dates: end: 20090622
  4. CYCLOSPORINE [Concomitant]
     Dosage: UNK UKN, UNK
     Dates: end: 20090101

REACTIONS (13)
  - Encephalitis [Recovering/Resolving]
  - Confusional state [Recovering/Resolving]
  - Malaise [Recovering/Resolving]
  - Loss of consciousness [Recovering/Resolving]
  - Pyrexia [Recovering/Resolving]
  - Epstein-Barr virus infection [Recovering/Resolving]
  - Encephalopathy [Recovering/Resolving]
  - Status epilepticus [Recovering/Resolving]
  - Agitation [Recovering/Resolving]
  - Amnestic disorder [Recovering/Resolving]
  - Persecutory delusion [Recovering/Resolving]
  - Panic attack [Recovering/Resolving]
  - Uraemic encephalopathy [Recovering/Resolving]
